FAERS Safety Report 10645545 (Version 1)
Quarter: 2014Q4

REPORT INFORMATION
  Report Type: Spontaneous
  Country: NL (occurrence: None)
  Receive Date: 20141209
  Receipt Date: 20141209
  Transmission Date: 20150529
  Serious: Yes (Death)
  Sender: FDA-Public Use
  Company Number: FK201405826

PATIENT
  Age: 33 Year
  Sex: Male

DRUGS (2)
  1. FENTANYL (FENTANYL) [Suspect]
     Active Substance: FENTANYL
     Indication: MUSCULOSKELETAL PAIN
     Dosage: UNKNOWN
  2. MORPHINE (MORPHINE) (MORPHINE) [Suspect]
     Active Substance: MORPHINE
     Indication: MUSCULOSKELETAL PAIN
     Dosage: UNKNOWN

REACTIONS (5)
  - Pulmonary oedema [None]
  - Skin lesion [None]
  - Ventricular hypertrophy [None]
  - Toxicity to various agents [None]
  - Pyomyositis [None]
